FAERS Safety Report 22005668 (Version 2)
Quarter: 2023Q1

REPORT INFORMATION
  Report Type: Spontaneous
  Country: JP (occurrence: JP)
  Receive Date: 20230217
  Receipt Date: 20230301
  Transmission Date: 20230418
  Serious: Yes (Death, Hospitalization, Other)
  Sender: FDA-Public Use
  Company Number: JP-PFIZER INC-202300037527

PATIENT
  Age: 80 Year
  Sex: Female
  Weight: 47.5 kg

DRUGS (6)
  1. XELJANZ [Suspect]
     Active Substance: TOFACITINIB CITRATE
     Indication: Rheumatoid arthritis
     Dosage: 5 MG, 2X/DAY (IN THE MORNING AND THE EVENING)
     Route: 048
     Dates: end: 20230120
  2. LOXOPROFEN [Concomitant]
     Active Substance: LOXOPROFEN
     Dosage: 1 DF, 1X/DAY IN THE MORNING
  3. TELMISARTAN [Concomitant]
     Active Substance: TELMISARTAN
     Dosage: 40 MG, 1X/DAY IN THE MORNING
  4. FAMOTIDINE [Concomitant]
     Active Substance: FAMOTIDINE
     Dosage: 20 MG, 2X/DAYIN THE MORNING AND THE EVENING
  5. BEPOTASTINE BESYLATE [Concomitant]
     Active Substance: BEPOTASTINE BESYLATE
     Dosage: 10 MG, 1X/DAY BEFORE BEDTIME
  6. NOVORAPID [Concomitant]
     Active Substance: INSULIN ASPART
     Indication: Diabetes mellitus

REACTIONS (9)
  - Pulmonary sepsis [Fatal]
  - Disseminated intravascular coagulation [Fatal]
  - Infection [Fatal]
  - Urinary tract infection [Fatal]
  - Device related infection [Fatal]
  - Altered state of consciousness [Unknown]
  - Ureteral stent insertion [Unknown]
  - Immunosuppression [Unknown]
  - Physical deconditioning [Unknown]

NARRATIVE: CASE EVENT DATE: 20221101
